FAERS Safety Report 8824822 (Version 2)
Quarter: 2012Q4

REPORT INFORMATION
  Report Type: 
  Country: US (occurrence: US)
  Receive Date: 20121004
  Receipt Date: 20121102
  Transmission Date: 20130627
  Serious: Yes (Other)
  Sender: FDA-Public Use
  Company Number: US-JNJFOC-20120911598

PATIENT
  Age: 66 Year
  Sex: Female

DRUGS (4)
  1. REMICADE [Suspect]
     Indication: CROHN^S DISEASE
     Dosage: 5 mg/kg 0, 2, 6 and 14 weeks
     Route: 042
     Dates: start: 20120426, end: 20121005
  2. REMICADE [Suspect]
     Indication: CROHN^S DISEASE
     Route: 042
     Dates: start: 20120607, end: 20120802
  3. REMICADE [Suspect]
     Indication: COLITIS ULCERATIVE
     Dosage: 5 mg/kg 0, 2, 6 and 14 weeks
     Route: 042
     Dates: start: 20120426, end: 20121005
  4. REMICADE [Suspect]
     Indication: COLITIS ULCERATIVE
     Route: 042
     Dates: start: 20120607, end: 20120802

REACTIONS (1)
  - Rectal adenocarcinoma [Not Recovered/Not Resolved]
